FAERS Safety Report 10211271 (Version 2)
Quarter: 2014Q3

REPORT INFORMATION
  Report Type: Spontaneous
  Country: US (occurrence: US)
  Receive Date: 20140602
  Receipt Date: 20140716
  Transmission Date: 20150326
  Serious: Yes (Other)
  Sender: FDA-Public Use
  Company Number: US-GLAXOSMITHKLINE-A1074784A

PATIENT
  Age: 75 Year
  Sex: Female

DRUGS (8)
  1. CITALOPRAM [Concomitant]
     Active Substance: CITALOPRAM HYDROBROMIDE
  2. PROVENTIL [Concomitant]
     Active Substance: ALBUTEROL
  3. ABILIFY [Concomitant]
     Active Substance: ARIPIPRAZOLE
  4. XANAX [Concomitant]
     Active Substance: ALPRAZOLAM
  5. NEURONTIN [Concomitant]
     Active Substance: GABAPENTIN
  6. ADVAIR HFA [Suspect]
     Active Substance: FLUTICASONE PROPIONATE\SALMETEROL XINAFOATE
     Indication: CHRONIC OBSTRUCTIVE PULMONARY DISEASE
     Dosage: 1PUFF TWICE PER DAY
     Route: 055
     Dates: start: 2011
  7. LIPITOR [Concomitant]
     Active Substance: ATORVASTATIN CALCIUM
  8. SYNTHROID [Concomitant]
     Active Substance: LEVOTHYROXINE SODIUM

REACTIONS (1)
  - Hernia repair [Recovering/Resolving]

NARRATIVE: CASE EVENT DATE: 201405
